FAERS Safety Report 5713726-4 (Version None)
Quarter: 2008Q2

REPORT INFORMATION
  Report Type: 
  Country: None (occurrence: None)
  Receive Date: 20080418
  Receipt Date: 20080403
  Transmission Date: 20081010
  Serious: Yes (Death, Congenital Anomaly)
  Sender: FDA-Public Use
  Company Number: 2007EU002730

PATIENT
  Sex: Male

DRUGS (4)
  1. PROGRAF [Suspect]
     Dosage: 7 MG, TRANSPLACENTAL
     Route: 064
  2. AZATHIOPRINE SODIUM [Suspect]
     Dosage: TRANSPLACENTAL
     Route: 064
  3. ASPEGIC 1000 [Suspect]
     Dosage: TRANSPLACENTAL
     Route: 064
  4. PREDNISOLONE [Suspect]
     Dosage: 1 DF, TRANSPLACENTAL
     Route: 064

REACTIONS (15)
  - ABDOMINAL DISTENSION [None]
  - ABORTION INDUCED [None]
  - CONGENITAL BLADDER ANOMALY [None]
  - CONGENITAL HAND MALFORMATION [None]
  - CONGENITAL NOSE MALFORMATION [None]
  - CONGENITAL URETERIC ANOMALY [None]
  - DRUG EXPOSURE DURING PREGNANCY [None]
  - EAR MALFORMATION [None]
  - MICROGNATHIA [None]
  - PATENT DUCTUS ARTERIOSUS [None]
  - PLACENTAL DISORDER [None]
  - RENAL DYSPLASIA [None]
  - RENAL HYPOPLASIA [None]
  - RETROGNATHIA [None]
  - URETHRAL VALVES [None]
